FAERS Safety Report 6576518-2 (Version None)
Quarter: 2010Q1

REPORT INFORMATION
  Report Type: 
  Country: None (occurrence: None)
  Receive Date: 20100210
  Receipt Date: 20100129
  Transmission Date: 20100710
  Serious: Yes (Hospitalization)
  Sender: FDA-Public Use
  Company Number: NL-AMGEN-US390703

PATIENT
  Sex: Female

DRUGS (1)
  1. ENBREL [Suspect]
     Indication: DRUG USE FOR UNKNOWN INDICATION
     Dosage: STARTED AT UNK DATE WITH 50 MG TWICE A WEEK, TEMPORARILY WITHDRAWN IN DEC-2009 AND RESTARTED
     Route: 058

REACTIONS (3)
  - BONE FORMATION DECREASED [None]
  - CLAVICLE FRACTURE [None]
  - FRACTURE NONUNION [None]
